FAERS Safety Report 8205474-6 (Version None)
Quarter: 2012Q1

REPORT INFORMATION
  Report Type: 
  Country: None (occurrence: None)
  Receive Date: 20120313
  Receipt Date: 20120305
  Transmission Date: 20120608
  Serious: Yes (Life-Threatening)
  Sender: FDA-Public Use
  Company Number: JP-BRISTOL-MYERS SQUIBB COMPANY-16307340

PATIENT
  Age: 66 Year
  Sex: Female
  Weight: 34 kg

DRUGS (3)
  1. DOCETAXEL [Suspect]
     Indication: TONGUE NEOPLASM MALIGNANT STAGE UNSPECIFIED
     Route: 042
     Dates: start: 20111214, end: 20111214
  2. CISPLATIN [Suspect]
     Indication: TONGUE NEOPLASM MALIGNANT STAGE UNSPECIFIED
     Route: 042
     Dates: start: 20111214, end: 20111214
  3. ALOXI [Concomitant]
     Dates: start: 20111214, end: 20111214

REACTIONS (1)
  - HYPERTENSION [None]
